FAERS Safety Report 15843995 (Version 2)
Quarter: 2019Q1

REPORT INFORMATION
  Report Type: Report from Study
  Country: US (occurrence: US)
  Receive Date: 20190118
  Receipt Date: 20190211
  Transmission Date: 20190417
  Serious: Yes (Hospitalization, Other)
  Sender: FDA-Public Use
  Company Number: US-ASTRAZENECA-2019SE06924

PATIENT
  Age: 527 Day
  Sex: Male
  Weight: 10.8 kg

DRUGS (1)
  1. SYNAGIS [Suspect]
     Active Substance: PALIVIZUMAB
     Indication: RESPIRATORY SYNCYTIAL VIRUS INFECTION
     Route: 030
     Dates: start: 20171114

REACTIONS (3)
  - Vomiting [Recovered/Resolved]
  - Viral infection [Unknown]
  - Otitis media [Unknown]

NARRATIVE: CASE EVENT DATE: 20181220
